FAERS Safety Report 9874377 (Version 3)
Quarter: 2016Q1

REPORT INFORMATION
  Report Type: Other
  Country: US (occurrence: US)
  Receive Date: 20140206
  Receipt Date: 20160229
  Transmission Date: 20160526
  Serious: No
  Sender: FDA-Public Use
  Company Number: US-ACORDA-ACO_32724_2012

PATIENT
  Age: 46 Year
  Sex: Female

DRUGS (1)
  1. AMPYRA [Suspect]
     Active Substance: DALFAMPRIDINE
     Indication: PRODUCT USED FOR UNKNOWN INDICATION
     Dosage: 10 MG, BID
     Route: 048
     Dates: start: 20120914

REACTIONS (10)
  - Neurogenic bladder [Unknown]
  - Stress [Unknown]
  - Limb discomfort [Unknown]
  - Paraesthesia [Not Recovered/Not Resolved]
  - Muscle spasms [Unknown]
  - Paraesthesia [Recovered/Resolved]
  - Hypoaesthesia [Recovering/Resolving]
  - Condition aggravated [Unknown]
  - Adverse drug reaction [Not Recovered/Not Resolved]
  - Urinary tract infection [Not Recovered/Not Resolved]

NARRATIVE: CASE EVENT DATE: 201210
